FAERS Safety Report 18301714 (Version 1)
Quarter: 2020Q3

REPORT INFORMATION
  Report Type: Spontaneous
  Country: GB (occurrence: GB)
  Receive Date: 20200923
  Receipt Date: 20200923
  Transmission Date: 20201103
  Serious: Yes (Disabling)
  Sender: FDA-Public Use
  Company Number: GB-REGENERON PHARMACEUTICALS, INC.-2020-77639

PATIENT

DRUGS (3)
  1. PROXYMETACAINE [Concomitant]
     Active Substance: PROPARACAINE HYDROCHLORIDE
     Indication: LOCAL ANAESTHESIA
     Dosage: 0.5 %, UNK
     Route: 050
     Dates: start: 20200717, end: 20200717
  2. EYLEA [Suspect]
     Active Substance: AFLIBERCEPT
     Indication: PRODUCT USED FOR UNKNOWN INDICATION
     Dosage: TOTAL DOSE OF EYLEA IS UNK. DATE OF LAST DOSE OF EYLEA ADMINISTERED PRIOR TO EVENT IS 17?JUL?2020
     Dates: start: 20200717, end: 20200717
  3. CHLORHEXIDINE [Concomitant]
     Active Substance: CHLORHEXIDINE
     Indication: INFECTION PROPHYLAXIS
     Route: 061
     Dates: start: 20200717, end: 20200717

REACTIONS (4)
  - Endophthalmitis [Recovering/Resolving]
  - Photophobia [Unknown]
  - Anterior chamber cell [Unknown]
  - Eye pain [Unknown]

NARRATIVE: CASE EVENT DATE: 20200717
